FAERS Safety Report 8477480-8 (Version None)
Quarter: 2012Q2

REPORT INFORMATION
  Report Type: 
  Country: None (occurrence: None)
  Receive Date: 20120629
  Receipt Date: 20120626
  Transmission Date: 20120825
  Serious: Yes (Other)
  Sender: FDA-Public Use
  Company Number: PHEH2012US012711

PATIENT
  Sex: Male
  Weight: 58.957 kg

DRUGS (1)
  1. EXJADE [Suspect]
     Indication: HAEMOCHROMATOSIS
     Dosage: 1000 MG, DAILY
     Route: 048

REACTIONS (1)
  - PNEUMONIA [None]
